FAERS Safety Report 9934098 (Version 1)
Quarter: 2014Q1

REPORT INFORMATION
  Report Type: Spontaneous
  Country: US (occurrence: US)
  Receive Date: 20140228
  Receipt Date: 20140228
  Transmission Date: 20141002
  Serious: No
  Sender: FDA-Public Use
  Company Number: US-ABBVIE-13P-163-1082102-00

PATIENT
  Sex: Male
  Weight: 83.99 kg

DRUGS (4)
  1. ANDROGEL [Suspect]
     Indication: BLOOD TESTOSTERONE DECREASED
     Dosage: PACKETS
     Dates: start: 2011, end: 201303
  2. ANDROGEL [Suspect]
     Dosage: QTY: 2X5GRAM PACKETS
     Route: 061
     Dates: start: 201303
  3. LORAZEPAM [Concomitant]
     Indication: ANXIETY
  4. LORAZEPAM [Concomitant]
     Indication: INSOMNIA

REACTIONS (4)
  - Erectile dysfunction [Not Recovered/Not Resolved]
  - Asthenia [Not Recovered/Not Resolved]
  - Libido decreased [Not Recovered/Not Resolved]
  - Extra dose administered [Unknown]
